FAERS Safety Report 9232179 (Version 4)
Quarter: 2014Q2

REPORT INFORMATION
  Report Type: Spontaneous
  Country: US (occurrence: US)
  Receive Date: 20130415
  Receipt Date: 20140626
  Transmission Date: 20141212
  Serious: Yes (Hospitalization, Other)
  Sender: FDA-Public Use
  Company Number: US-009507513-1304USA005206

PATIENT
  Sex: Male

DRUGS (1)
  1. PROPECIA [Suspect]
     Indication: ALOPECIA
     Dosage: 1 MG, UNK
     Route: 048
     Dates: start: 2003

REACTIONS (19)
  - Surgery [Unknown]
  - Cellulitis [Unknown]
  - Renal failure acute [Unknown]
  - Hyponatraemia [Recovered/Resolved]
  - Hypokalaemia [Recovered/Resolved]
  - Uvulopalatopharyngoplasty [Unknown]
  - Head injury [Unknown]
  - Cognitive disorder [Not Recovered/Not Resolved]
  - Anxiety [Unknown]
  - Hypertension [Unknown]
  - Reproductive tract disorder [Not Recovered/Not Resolved]
  - Sleep apnoea syndrome [Unknown]
  - Neuropathy peripheral [Unknown]
  - Muscle rupture [Unknown]
  - Alcohol abuse [Recovering/Resolving]
  - Hypogonadism male [Unknown]
  - Depression [Not Recovered/Not Resolved]
  - Sexual dysfunction [Unknown]
  - Erectile dysfunction [Unknown]
